FAERS Safety Report 4871019-1 (Version None)
Quarter: 2006Q1

REPORT INFORMATION
  Report Type: 
  Country: None (occurrence: None)
  Receive Date: 20060103
  Receipt Date: 20051228
  Transmission Date: 20060701
  Serious: Yes (Death)
  Sender: FDA-Public Use
  Company Number: US-JNJFOC-20051101432

PATIENT
  Sex: Male

DRUGS (3)
  1. RISPERDAL [Suspect]
     Route: 048
  2. KLONOPIN [Concomitant]
     Indication: ANXIETY
     Route: 048
  3. COGENTIN [Concomitant]
     Dosage: (TAKEN AS 2 MG IN THE MORNING, 1 MG AT NOON, AND 2 MG AT NIGHT)

REACTIONS (1)
  - MYOCARDIAL INFARCTION [None]
